FAERS Safety Report 5162822-1 (Version None)
Quarter: 2006Q4

REPORT INFORMATION
  Report Type: 
  Country: None (occurrence: None)
  Receive Date: 20061201
  Receipt Date: 20061129
  Transmission Date: 20070319
  Serious: Yes (Hospitalization)
  Sender: FDA-Public Use
  Company Number: US-GLAXOSMITHKLINE-A0629428A

PATIENT
  Age: 62 Year
  Sex: Female

DRUGS (6)
  1. COREG [Suspect]
     Indication: DRUG USE FOR UNKNOWN INDICATION
     Dosage: 3.125MG TWICE PER DAY
     Route: 048
     Dates: start: 20050801
  2. DIGOXIN [Suspect]
     Indication: CARDIAC FAILURE
     Dosage: .125TAB PER DAY
     Route: 048
  3. LOTENSIN [Concomitant]
  4. LASIX [Concomitant]
  5. COUMADIN [Concomitant]
  6. GLUCOTROL [Concomitant]

REACTIONS (5)
  - COUGH [None]
  - OEDEMA PERIPHERAL [None]
  - THERAPEUTIC AGENT TOXICITY [None]
  - WEIGHT DECREASED [None]
  - WEIGHT INCREASED [None]
